FAERS Safety Report 6123821-6 (Version None)
Quarter: 2009Q1

REPORT INFORMATION
  Report Type: 
  Country: None (occurrence: None)
  Receive Date: 20090317
  Receipt Date: 20090303
  Transmission Date: 20090719
  Serious: Yes (Hospitalization)
  Sender: FDA-Public Use
  Company Number: 2009BM000005

PATIENT
  Sex: Female
  Weight: 24 kg

DRUGS (1)
  1. NAGLAZYME [Suspect]
     Indication: MUCOPOLYSACCHARIDOSIS VI
     Dosage: 4 VIALS; QW; IVDRP
     Route: 041
     Dates: start: 20070917

REACTIONS (2)
  - MITRAL VALVE INCOMPETENCE [None]
  - PNEUMONIA [None]
